FAERS Safety Report 6651641-2 (Version None)
Quarter: 2010Q1

REPORT INFORMATION
  Report Type: 
  Country: None (occurrence: None)
  Receive Date: 20100325
  Receipt Date: 20100323
  Transmission Date: 20100710
  Serious: Yes (Other)
  Sender: FDA-Public Use
  Company Number: US-ALEXION-A201000245

PATIENT

DRUGS (1)
  1. SOLIRIS [Suspect]

REACTIONS (1)
  - MENINGITIS [None]
